FAERS Safety Report 5159844-3 (Version None)
Quarter: 2006Q4

REPORT INFORMATION
  Report Type: 
  Country: None (occurrence: None)
  Receive Date: 20061129
  Receipt Date: 20060215
  Transmission Date: 20070319
  Serious: No
  Sender: FDA-Public Use
  Company Number: US-GLAXOSMITHKLINE-A0593851A

PATIENT
  Sex: Male

DRUGS (4)
  1. WELLBUTRIN SR [Suspect]
     Indication: DEPRESSION
     Dosage: 150MG TWICE PER DAY
     Route: 048
  2. LUNESTA [Concomitant]
  3. MEVACOR [Concomitant]
  4. CLARINEX [Concomitant]

REACTIONS (1)
  - ERECTILE DYSFUNCTION [None]
